FAERS Safety Report 8533901 (Version 3)
Quarter: 2013Q3

REPORT INFORMATION
  Report Type: Report from Study
  Country: BR (occurrence: BR)
  Receive Date: 20120427
  Receipt Date: 20130723
  Transmission Date: 20140515
  Serious: Yes (Other)
  Sender: FDA-Public Use
  Company Number: BR-ROCHE-1059937

PATIENT
  Sex: Female
  Weight: 60 kg

DRUGS (15)
  1. MABTHERA [Suspect]
     Indication: RHEUMATOID ARTHRITIS
     Dosage: TOTAL DOSE: 1000 MG/ML
     Route: 042
     Dates: start: 20100101
  2. MABTHERA [Suspect]
     Indication: SCLERODERMA
     Dosage: TOTAL DOSE: 1000 MG/ML
     Route: 042
     Dates: start: 20120115
  3. PURAN T4 [Concomitant]
     Indication: HYPERTHYROIDISM
     Route: 065
  4. ATENOLOL [Concomitant]
     Indication: CARDIAC DISORDER
     Route: 065
  5. CILOSTAZOL [Concomitant]
     Route: 065
  6. URSACOL [Concomitant]
     Route: 065
  7. CLONAZEPAM [Concomitant]
     Route: 065
  8. REGULAR INSULIN [Concomitant]
     Route: 065
  9. NPH INSULIN [Concomitant]
     Dosage: 50 IU IN THE MORNING AND 30 IU IN LUNCH TIME AND DINNER DAILY
     Route: 065
  10. LINSEED OIL [Concomitant]
  11. OMEGA 3 [Concomitant]
  12. BREWER^S YEAST [Concomitant]
  13. METFORMIN [Concomitant]
     Route: 065
  14. OMEPRAZOLE [Concomitant]
     Route: 065
  15. PREDNISONE [Concomitant]
     Route: 065

REACTIONS (7)
  - Bone marrow disorder [Not Recovered/Not Resolved]
  - Pulmonary necrosis [Unknown]
  - Scleroderma [Unknown]
  - Pain [Not Recovered/Not Resolved]
  - Infection [Unknown]
  - Weight decreased [Unknown]
  - Insomnia [Unknown]
